FAERS Safety Report 18207070 (Version 1)
Quarter: 2020Q3

REPORT INFORMATION
  Report Type: Spontaneous
  Country: CN (occurrence: CN)
  Receive Date: 20200828
  Receipt Date: 20200828
  Transmission Date: 20201103
  Serious: Yes (Other)
  Sender: FDA-Public Use
  Company Number: CN-ASTRAZENECA-2020SF06592

PATIENT
  Age: 30681 Day
  Sex: Male
  Weight: 50 kg

DRUGS (1)
  1. PULMICORT RESPULES [Suspect]
     Active Substance: BUDESONIDE
     Indication: CHRONIC OBSTRUCTIVE PULMONARY DISEASE
     Route: 055
     Dates: start: 20200731, end: 20200731

REACTIONS (10)
  - Heart rate increased [Unknown]
  - Dyspnoea [Unknown]
  - Cyanosis [Unknown]
  - Rales [Unknown]
  - Wheezing [Recovering/Resolving]
  - Hyperhidrosis [Recovering/Resolving]
  - Conjunctival hyperaemia [Unknown]
  - Eye oedema [Unknown]
  - Asthma [Unknown]
  - Oxygen saturation decreased [Unknown]

NARRATIVE: CASE EVENT DATE: 20200731
